FAERS Safety Report 18691724 (Version 4)
Quarter: 2021Q2

REPORT INFORMATION
  Report Type: Spontaneous
  Country: US (occurrence: US)
  Receive Date: 20210102
  Receipt Date: 20210505
  Transmission Date: 20210717
  Serious: Yes (Other)
  Sender: FDA-Public Use
  Company Number: US-SUN PHARMACEUTICAL INDUSTRIES LTD-2020R1-273549

PATIENT
  Age: 46 Year
  Sex: Female

DRUGS (1)
  1. ILUMYA [Suspect]
     Active Substance: TILDRAKIZUMAB-ASMN
     Indication: PSORIASIS
     Dosage: 100 MILLIGRAM, Q 12 WEEKS (1.1905 MG)
     Route: 058
     Dates: start: 20201202, end: 20201223

REACTIONS (2)
  - Mycobacterium tuberculosis complex test positive [Unknown]
  - Product dose omission issue [Unknown]

NARRATIVE: CASE EVENT DATE: 20201220
